FAERS Safety Report 12703019 (Version 1)
Quarter: 2016Q3

REPORT INFORMATION
  Report Type: Spontaneous
  Country: GB (occurrence: GB)
  Receive Date: 20160831
  Receipt Date: 20160831
  Transmission Date: 20161109
  Serious: Yes (Hospitalization)
  Sender: FDA-Public Use
  Company Number: GB-PFIZER INC-2015092257

PATIENT
  Sex: Female

DRUGS (3)
  1. WATER FOR INJECTION [Suspect]
     Active Substance: WATER
     Indication: MEDICATION DILUTION
     Dosage: 40 ML, 5X/WEEKLY
     Route: 058
     Dates: start: 20150223
  2. DESFERAL [Suspect]
     Active Substance: DEFEROXAMINE MESYLATE
     Dosage: 2 G,  5X/WEEK
     Route: 058
     Dates: start: 20150223
  3. SODIUM CHLORIDE. [Suspect]
     Active Substance: SODIUM CHLORIDE
     Indication: MEDICATION DILUTION
     Dosage: 40 ML, 5X/WEEK
     Route: 058
     Dates: start: 20150223

REACTIONS (4)
  - Oropharyngeal pain [Unknown]
  - Viral infection [Unknown]
  - Ear discomfort [Unknown]
  - General physical health deterioration [Unknown]

NARRATIVE: CASE EVENT DATE: 20150225
